FAERS Safety Report 24528596 (Version 1)
Quarter: 2024Q4

REPORT INFORMATION
  Report Type: Report from Study
  Country: US (occurrence: US)
  Receive Date: 20241021
  Receipt Date: 20241021
  Transmission Date: 20250115
  Serious: Yes (Other)
  Sender: GILEAD
  Company Number: US-GILEAD-2024-0691434

PATIENT
  Age: 48 Year
  Sex: Female

DRUGS (5)
  1. AMBRISENTAN [Suspect]
     Active Substance: AMBRISENTAN
     Indication: Pulmonary arterial hypertension
     Dosage: 10 MG, QD
     Route: 065
     Dates: start: 202302
  2. ORENITRAM [Concomitant]
     Active Substance: TREPROSTINIL
     Indication: Pulmonary arterial hypertension
     Dosage: 3 DOSAGE FORM [0.125  MILLIGRAMS]
     Route: 065
     Dates: start: 202301
  3. ORENITRAM [Concomitant]
     Active Substance: TREPROSTINIL
     Dosage: 1 MG
     Route: 065
     Dates: start: 202301
  4. ORENITRAM [Concomitant]
     Active Substance: TREPROSTINIL
     Dosage: 3 DOSAGE FORM [2.5 MG]
     Route: 065
     Dates: start: 202301
  5. SILDENAFIL CITRATE [Concomitant]
     Active Substance: SILDENAFIL CITRATE

REACTIONS (5)
  - Blindness [Not Recovered/Not Resolved]
  - Pain [Unknown]
  - Diarrhoea [Not Recovered/Not Resolved]
  - Abdominal discomfort [Not Recovered/Not Resolved]
  - Nausea [Not Recovered/Not Resolved]
